FAERS Safety Report 8027391-7 (Version None)
Quarter: 2012Q1

REPORT INFORMATION
  Report Type: 
  Country: None (occurrence: None)
  Receive Date: 20120104
  Receipt Date: 20111214
  Transmission Date: 20120608
  Serious: Yes (Congenital Anomaly, Other)
  Sender: FDA-Public Use
  Company Number: JP-20110041

PATIENT
  Age: 3 Day

DRUGS (1)
  1. (LIPIODOL ULTRA FLUIDE) (ETHIODIZED OIL) [Suspect]
     Indication: PRODUCT USED FOR UNKNOWN INDICATION
     Dosage: (10 ML, 1 D)

REACTIONS (5)
  - CAESAREAN SECTION [None]
  - FOETAL EXPOSURE DURING PREGNANCY [None]
  - CONTRAST MEDIA REACTION [None]
  - GOITRE [None]
  - HYPOTHYROIDISM [None]
